FAERS Safety Report 21220675 (Version 1)
Quarter: 2022Q3

REPORT INFORMATION
  Report Type: Spontaneous
  Country: CN (occurrence: CN)
  Receive Date: 20220817
  Receipt Date: 20220817
  Transmission Date: 20221027
  Serious: Yes (Other)
  Sender: FDA-Public Use
  Company Number: CN-PFIZER INC-202201053013

PATIENT
  Sex: Female

DRUGS (2)
  1. ENBREL [Suspect]
     Active Substance: ETANERCEPT
     Indication: Ankylosing spondylitis
     Dosage: UNK, FOR ONE YEAR; LAST YEAR, ONCE EVERY 3 DAYS, INJECTED FOR A YEAR
     Route: 065
     Dates: start: 2021
  2. ENBREL [Suspect]
     Active Substance: ETANERCEPT
     Dosage: ONCE EVERY 3 DAYS
     Route: 065
     Dates: start: 20220804, end: 20220807

REACTIONS (5)
  - Breast cancer [Unknown]
  - Inappropriate schedule of product administration [Unknown]
  - C-reactive protein increased [Unknown]
  - Feeling hot [Unknown]
  - Back pain [Unknown]

NARRATIVE: CASE EVENT DATE: 20220401
